FAERS Safety Report 17615602 (Version 1)
Quarter: 2020Q2

REPORT INFORMATION
  Report Type: Spontaneous
  Country: JP (occurrence: JP)
  Receive Date: 20200402
  Receipt Date: 20200402
  Transmission Date: 20200713
  Serious: Yes (Hospitalization)
  Sender: FDA-Public Use
  Company Number: NVSC2020JP090038

PATIENT
  Age: 67 Year
  Sex: Male

DRUGS (1)
  1. METHYLPREDNISOLONE. [Suspect]
     Active Substance: METHYLPREDNISOLONE
     Indication: ENTERITIS
     Dosage: 25 MG, QD
     Route: 048

REACTIONS (5)
  - Abdominal pain [Unknown]
  - Ascites [Unknown]
  - Gastrointestinal ulcer [Unknown]
  - Small intestinal perforation [Unknown]
  - Product use in unapproved indication [Unknown]
